FAERS Safety Report 14179023 (Version 1)
Quarter: 2017Q4

REPORT INFORMATION
  Report Type: Spontaneous
  Country: ZA (occurrence: ZA)
  Receive Date: 20171110
  Receipt Date: 20171110
  Transmission Date: 20180321
  Serious: Yes (Hospitalization)
  Sender: FDA-Public Use
  Company Number: ZA-PFIZER INC-2017480925

PATIENT
  Age: 56 Year
  Sex: Female

DRUGS (25)
  1. ZYVOXID [Suspect]
     Active Substance: LINEZOLID
     Dosage: 600 MG, 2X/DAY
     Route: 042
     Dates: start: 20170724
  2. ERAXIS [Suspect]
     Active Substance: ANIDULAFUNGIN
     Dosage: 200 MG, SINGLE
     Dates: start: 20170721
  3. MAGNESIUM SULPHATE /01097001/ [Concomitant]
     Active Substance: MAGNESIUM SULFATE
     Route: 042
  4. DIRPIVAN [Concomitant]
  5. TRAMAL [Concomitant]
     Active Substance: TRAMADOL
     Route: 042
  6. NEXIUM [Concomitant]
     Active Substance: ESOMEPRAZOLE MAGNESIUM
     Route: 042
  7. CORDARONE [Concomitant]
     Active Substance: AMIODARONE HYDROCHLORIDE
     Route: 042
  8. LASIX [Concomitant]
     Active Substance: FUROSEMIDE
     Route: 042
  9. FOXAIR [Concomitant]
     Active Substance: FLUTICASONE PROPIONATE\SALMETEROL XINAFOATE
     Route: 055
  10. STEMETIL /00013301/ [Concomitant]
     Active Substance: PROCHLORPERAZINE
     Route: 030
  11. TEMGESIC [Concomitant]
     Active Substance: BUPRENORPHINE HYDROCHLORIDE
  12. ZOFRAN [Concomitant]
     Active Substance: ONDANSETRON HYDROCHLORIDE
     Route: 042
  13. DIFLUCAN [Concomitant]
     Active Substance: FLUCONAZOLE
     Dosage: UNK
     Route: 042
  14. GYNO PEVARYL [Concomitant]
     Active Substance: ECONAZOLE NITRATE
     Dosage: UNK, SINGLE
  15. DF 118 [Concomitant]
     Route: 030
  16. ATROVENT [Concomitant]
     Active Substance: IPRATROPIUM BROMIDE
     Route: 055
  17. STILNOX [Concomitant]
     Active Substance: ZOLPIDEM TARTRATE
     Route: 048
  18. ERAXIS [Suspect]
     Active Substance: ANIDULAFUNGIN
     Dosage: 100 MG, DAILY
     Dates: start: 20170723
  19. POTASSIUM CHLORIDE. [Concomitant]
     Active Substance: POTASSIUM CHLORIDE
     Route: 042
  20. NORVASC [Concomitant]
     Active Substance: AMLODIPINE BESYLATE
     Route: 048
  21. ZITHROMAX [Concomitant]
     Active Substance: AZITHROMYCIN DIHYDRATE
     Route: 048
  22. TRANDATE [Concomitant]
     Active Substance: LABETALOL HYDROCHLORIDE
  23. MERONEM [Concomitant]
     Active Substance: MEROPENEM
     Dosage: 3 G, 3X/DAY
     Dates: start: 20160713
  24. PERFALGAN [Concomitant]
     Active Substance: ACETAMINOPHEN
  25. XEFO [Concomitant]
     Active Substance: LORNOXICAM
     Route: 042

REACTIONS (17)
  - Inflammation [Unknown]
  - Blood albumin decreased [Unknown]
  - White blood cell count increased [Unknown]
  - Haematocrit decreased [Unknown]
  - Infection [Unknown]
  - Body temperature increased [Unknown]
  - Red blood cell count decreased [Unknown]
  - Platelet count increased [Unknown]
  - C-reactive protein increased [Unknown]
  - Procalcitonin increased [Unknown]
  - Blood sodium decreased [Unknown]
  - Blood potassium increased [Unknown]
  - Haemoglobin decreased [Unknown]
  - Monocyte count increased [Unknown]
  - Lymphocyte count increased [Unknown]
  - Neutrophil count increased [Unknown]
  - Blood phosphorus abnormal [Unknown]

NARRATIVE: CASE EVENT DATE: 20170724
